FAERS Safety Report 10165734 (Version 2)
Quarter: 2014Q2

REPORT INFORMATION
  Report Type: Spontaneous
  Country: US (occurrence: US)
  Receive Date: 20140510
  Receipt Date: 20140510
  Transmission Date: 20141212
  Serious: No
  Sender: FDA-Public Use
  Company Number: US-BRISTOL-MYERS SQUIBB COMPANY-19918465

PATIENT
  Age: 56 Year
  Sex: Female
  Weight: 82.54 kg

DRUGS (13)
  1. BYDUREON [Suspect]
     Indication: TYPE 2 DIABETES MELLITUS
     Dosage: 5 TH INJECTION ON 11-DEC-2013
     Route: 058
     Dates: start: 20131105
  2. METFORMIN HCL [Suspect]
     Route: 048
     Dates: start: 20131105
  3. LASIX [Concomitant]
  4. ALDACTONE [Concomitant]
  5. DILAUDID [Concomitant]
  6. GABAPENTIN [Concomitant]
  7. VIMPAT [Concomitant]
  8. VIVELLE [Concomitant]
  9. ASA [Concomitant]
  10. PANTOPRAZOLE [Concomitant]
  11. DILAUDID [Concomitant]
  12. NORTRIPTYLINE [Concomitant]
  13. MSO4 [Concomitant]

REACTIONS (8)
  - Nausea [Recovering/Resolving]
  - Headache [Recovering/Resolving]
  - Weight decreased [Recovering/Resolving]
  - Dizziness [Recovering/Resolving]
  - Vomiting [Recovering/Resolving]
  - Injection site mass [Recovered/Resolved]
  - Abdominal pain [Recovering/Resolving]
  - Blood glucose decreased [Recovering/Resolving]
